FAERS Safety Report 12636410 (Version 2)
Quarter: 2017Q1

REPORT INFORMATION
  Report Type: Spontaneous
  Country: JP (occurrence: JP)
  Receive Date: 20160809
  Receipt Date: 20170321
  Transmission Date: 20170428
  Serious: Yes (Life-Threatening, Hospitalization, Other)
  Sender: FDA-Public Use
  Company Number: JP-ACCORD-042972

PATIENT
  Age: 62 Year
  Sex: Male

DRUGS (8)
  1. GRANULOCYTE COLONY STIMULATING [Concomitant]
     Active Substance: GRANULOCYTE COLONY-STIMULATING FACTOR NOS
     Indication: PROPHYLAXIS
  2. IRINOTECAN [Suspect]
     Active Substance: IRINOTECAN
     Indication: PANCREATIC CARCINOMA
     Dosage: 65% DOSE OF BODY SURFACE AREA 1.5 M2
  3. CALCIUM LEVOFOLINATE [Suspect]
     Active Substance: LEVOLEUCOVORIN CALCIUM
     Indication: PANCREATIC CARCINOMA
     Dosage: 65% DOSE OF BODY SURFACE AREA 1.5 M2
  4. FLUOROURACIL. [Suspect]
     Active Substance: FLUOROURACIL
     Indication: PANCREATIC CARCINOMA
     Dosage: (BOLUS) 400 MG/M2, (CONTINUOUS INFUSION) 2,400 MG/M2 WAS INITIATED IN THE STANDARD THERAPEUTIC DOSE
  5. PACLITAXEL/PACLITAXEL LIPOSOME [Suspect]
     Active Substance: PACLITAXEL
     Indication: PANCREATIC CARCINOMA
     Dosage: 3 WEEKS ADMINISTRATION WITH 1 WEEK REST DRUG NAB-PACLITAXEL
     Dates: start: 201501
  6. OXALIPLATIN. [Suspect]
     Active Substance: OXALIPLATIN
     Indication: PANCREATIC CARCINOMA
     Dosage: 65% OF DOSE AS 85MG/BODY,
  7. PEGFILGRASTIM [Concomitant]
     Active Substance: PEGFILGRASTIM
     Indication: PROPHYLAXIS
  8. GEMCITABINE/GEMCITABINE HYDROCHLORIDE [Suspect]
     Active Substance: GEMCITABINE\GEMCITABINE HYDROCHLORIDE
     Indication: PANCREATIC CARCINOMA
     Dosage: 14 COURSES WAS PERFORMED

REACTIONS (8)
  - Gait disturbance [Unknown]
  - Platelet count decreased [Unknown]
  - Neutropenia [Unknown]
  - Haemoglobin decreased [Unknown]
  - Haematotoxicity [Unknown]
  - Performance status decreased [Unknown]
  - Drug ineffective [Unknown]
  - Febrile neutropenia [Recovered/Resolved]

NARRATIVE: CASE EVENT DATE: 201509
